FAERS Safety Report 14179655 (Version 3)
Quarter: 2018Q3

REPORT INFORMATION
  Report Type: Spontaneous
  Country: NO (occurrence: NO)
  Receive Date: 20171110
  Receipt Date: 20180704
  Transmission Date: 20181010
  Serious: Yes (Death, Other)
  Sender: FDA-Public Use
  Company Number: NO-ASTRAZENECA-2017SF14378

PATIENT
  Age: 17215 Day
  Sex: Male

DRUGS (5)
  1. SEROQUEL [Suspect]
     Active Substance: QUETIAPINE FUMARATE
     Indication: PSYCHOTIC DISORDER
     Dosage: 100 + 300MG, UNKNOWN
     Route: 048
     Dates: start: 20120830, end: 20140511
  2. PARACETAMOL [Suspect]
     Active Substance: ACETAMINOPHEN
     Indication: TOOTHACHE
     Dosage: 1?2 TABLESX3
     Route: 065
     Dates: start: 20131101, end: 20140511
  3. PARACETAMOL [Suspect]
     Active Substance: ACETAMINOPHEN
     Indication: TOOTHACHE
     Dosage: 500MG 1?2 TABLETS, 3 TIMES DAILY
     Route: 065
     Dates: start: 20130109
  4. SEROQUEL [Suspect]
     Active Substance: QUETIAPINE FUMARATE
     Indication: PSYCHOTIC DISORDER
     Dosage: 100 + 200MG, UNKNOWN
     Route: 048
     Dates: start: 20110921, end: 20120830
  5. ZOPICLONE [Concomitant]
     Active Substance: ZOPICLONE

REACTIONS (2)
  - Hepatic failure [Fatal]
  - Drug-induced liver injury [Fatal]

NARRATIVE: CASE EVENT DATE: 20140101
